FAERS Safety Report 9353069 (Version 1)
Quarter: 2013Q2

REPORT INFORMATION
  Report Type: Spontaneous
  Country: US (occurrence: None)
  Receive Date: 20130617
  Receipt Date: 20130617
  Transmission Date: 20140414
  Serious: Yes (Other)
  Sender: FDA-Public Use
  Company Number: None

PATIENT
  Age: 32 Year
  Sex: Male

DRUGS (1)
  1. TEMODAR [Suspect]
     Indication: PANCREATIC CARCINOMA
     Route: 048
     Dates: start: 20120816, end: 20130201

REACTIONS (1)
  - Drug ineffective [None]
